FAERS Safety Report 17487875 (Version 1)
Quarter: 2020Q1

REPORT INFORMATION
  Report Type: Spontaneous
  Country: US (occurrence: US)
  Receive Date: 20200303
  Receipt Date: 20200303
  Transmission Date: 20200409
  Serious: No
  Sender: FDA-Public Use
  Company Number: US-PFIZER INC-2020090012

PATIENT
  Age: 62 Year
  Sex: Male

DRUGS (3)
  1. OMNICEF [Suspect]
     Active Substance: CEFDINIR
     Dosage: UNK
  2. CEFDINIR. [Suspect]
     Active Substance: CEFDINIR
     Dosage: UNK
  3. CLINDAMYCIN. [Suspect]
     Active Substance: CLINDAMYCIN
     Dosage: UNK

REACTIONS (2)
  - Rash [Unknown]
  - Drug hypersensitivity [Unknown]
